FAERS Safety Report 23225914 (Version 2)
Quarter: 2024Q1

REPORT INFORMATION
  Report Type: Spontaneous
  Country: US (occurrence: US)
  Receive Date: 20231124
  Receipt Date: 20240103
  Transmission Date: 20240410
  Serious: Yes (Hospitalization, Other)
  Sender: FDA-Public Use
  Company Number: US-BRISTOL-MYERS SQUIBB COMPANY-2023-166990

PATIENT
  Age: 78 Year
  Sex: Male
  Weight: 92.08 kg

DRUGS (1)
  1. THALOMID [Suspect]
     Active Substance: THALIDOMIDE
     Indication: Plasma cell myeloma
     Dosage: EVERY NIGHT AT BEDTIME
     Route: 048
     Dates: start: 20231025

REACTIONS (8)
  - Gastroenteritis salmonella [Recovering/Resolving]
  - Dehydration [Unknown]
  - Atrial fibrillation [Unknown]
  - Dyspnoea [Unknown]
  - Fall [Unknown]
  - Electrolyte imbalance [Unknown]
  - Infection [Unknown]
  - Diarrhoea [Unknown]

NARRATIVE: CASE EVENT DATE: 20230401
